FAERS Safety Report 8556972-7 (Version None)
Quarter: 2012Q3

REPORT INFORMATION
  Report Type: 
  Country: None (occurrence: None)
  Receive Date: 20120801
  Receipt Date: 20120727
  Transmission Date: 20120928
  Serious: Yes (Hospitalization, Other)
  Sender: FDA-Public Use
  Company Number: CZ-009507513-1207CZE012516

PATIENT

DRUGS (17)
  1. DOXORUBICIN HYDROCHLORIDE [Concomitant]
     Indication: SARCOMA METASTATIC
     Dosage: 82 MG/250 ML SALINE SOULTION/30MIN
     Route: 041
     Dates: start: 20120620, end: 20120622
  2. MESNA [Concomitant]
     Dosage: 2000 MG/100ML SALINE SOLUTION/15MIN AFTER 6 HOURS AFTER THE END OF CHEMOTHERAPY ADMINSTRATION
     Route: 041
     Dates: start: 20120620, end: 20120622
  3. MESNA [Concomitant]
     Dosage: 2000 MG/100ML SALINE SOLUTION/15MIN AFTER 12 HOURS AFTER THE END OF CHEMOTHERAPY ADMINSTRATION
     Route: 041
     Dates: start: 20120620, end: 20120622
  4. FRAXIPARINE [Concomitant]
     Dosage: 0.6 ML, AT 7 AM
     Route: 058
  5. DEXONA INJECTION [Concomitant]
     Dosage: 12 MG, UNK
     Route: 040
     Dates: start: 20120620, end: 20120622
  6. METOPROLOL TARTRATE [Concomitant]
     Dosage: 0.5 DF, QD
  7. FRAXIPARINE [Concomitant]
     Dosage: 0.8 ML, AT 7 PM
     Route: 058
  8. CORTICOSTEROIDS (UNSPECIFIED) [Concomitant]
  9. EMEND [Suspect]
     Indication: PROPHYLAXIS OF NAUSEA AND VOMITING
     Dosage: 125 MG, ONCE
     Route: 048
     Dates: start: 20120620
  10. OXYCONTIN [Concomitant]
     Dosage: 20 MG, BID
  11. ONDANSETRON [Concomitant]
     Indication: SARCOMA METASTATIC
     Dosage: 12 MG, UNK
     Route: 040
     Dates: start: 20120620, end: 20120622
  12. CORDARONE [Concomitant]
     Dosage: 200 MG, QD
  13. POTASSIUM CHLORIDE [Concomitant]
     Dosage: 0-1-0
  14. MESNA [Concomitant]
     Dosage: 1200 MG/100ML SALINE SOLUTION/15MIN
     Route: 041
     Dates: start: 20120620, end: 20120622
  15. IFOSFAMIDE [Concomitant]
     Indication: SARCOMA METASTATIC
     Dosage: 8230 MG DIVIDED 3X1000 ML FR (EACH INFUSION FOR 8 HOURS, IN TOTAL 24 HOURS) +MESNA 2000MG
     Route: 041
     Dates: start: 20120620, end: 20120622
  16. EMEND [Suspect]
     Dosage: 80 MG, ONCE
     Route: 048
     Dates: start: 20120621
  17. EMEND [Suspect]
     Dosage: 80 MG, ONCE
     Route: 048
     Dates: start: 20120622

REACTIONS (1)
  - ACUTE PSYCHOSIS [None]
